FAERS Safety Report 9461637 (Version 2)
Quarter: 2013Q3

REPORT INFORMATION
  Report Type: Spontaneous
  Country: GB (occurrence: GB)
  Receive Date: 20130816
  Receipt Date: 20130829
  Transmission Date: 20140515
  Serious: No
  Sender: FDA-Public Use
  Company Number: GB-JNJFOC-20130806453

PATIENT
  Sex: Female

DRUGS (1)
  1. DUROGESIC DTRANS [Suspect]
     Indication: HOT FLUSH
     Route: 062

REACTIONS (5)
  - Application site reaction [Unknown]
  - Pruritus [Unknown]
  - Flushing [Unknown]
  - Product quality issue [Unknown]
  - Wrong technique in drug usage process [Unknown]
